FAERS Safety Report 20455865 (Version 13)
Quarter: 2025Q1

REPORT INFORMATION
  Report Type: Spontaneous
  Country: US (occurrence: US)
  Receive Date: 20220210
  Receipt Date: 20250313
  Transmission Date: 20250408
  Serious: Yes (Other)
  Sender: PFIZER
  Company Number: US-PFIZER INC-202101596363

PATIENT
  Age: 55 Year
  Sex: Female

DRUGS (6)
  1. IBRANCE [Suspect]
     Active Substance: PALBOCICLIB
     Indication: Breast cancer metastatic
  2. IBRANCE [Suspect]
     Active Substance: PALBOCICLIB
     Route: 048
  3. IBRANCE [Suspect]
     Active Substance: PALBOCICLIB
     Route: 048
  4. IBRANCE [Suspect]
     Active Substance: PALBOCICLIB
  5. IBRANCE [Suspect]
     Active Substance: PALBOCICLIB
  6. IBRANCE [Suspect]
     Active Substance: PALBOCICLIB
     Route: 048

REACTIONS (5)
  - Cytopenia [Unknown]
  - Brain fog [Unknown]
  - Cognitive disorder [Unknown]
  - Off label use [Unknown]
  - Product dose omission issue [Unknown]
